FAERS Safety Report 5140950-4 (Version None)
Quarter: 2006Q4

REPORT INFORMATION
  Report Type: 
  Country: None (occurrence: None)
  Receive Date: 20061027
  Receipt Date: 20061027
  Transmission Date: 20070319
  Serious: Yes (Hospitalization, Other)
  Sender: FDA-Public Use
  Company Number: None

PATIENT
  Sex: Male
  Weight: 105 kg

DRUGS (1)
  1. ERBITUX [Suspect]
     Dosage: 25.9 ML
     Dates: end: 20061018

REACTIONS (5)
  - AGITATION [None]
  - CONVULSION [None]
  - INFUSION RELATED REACTION [None]
  - OBSTRUCTIVE AIRWAYS DISORDER [None]
  - RESUSCITATION [None]
